FAERS Safety Report 5872202-9 (Version None)
Quarter: 2008Q3

REPORT INFORMATION
  Report Type: 
  Country: None (occurrence: None)
  Receive Date: 20080905
  Receipt Date: 20080905
  Transmission Date: 20090109
  Serious: Yes (Life-Threatening, Hospitalization)
  Sender: FDA-Public Use
  Company Number: BR-BOEHRINGER INGELHEIM GMBH, GERMANY-2008-BP-13698BR

PATIENT
  Age: 54 Year
  Sex: Male

DRUGS (3)
  1. BEROTEC [Suspect]
     Indication: RESPIRATORY FAILURE
     Route: 055
     Dates: start: 20080903, end: 20080903
  2. ATROVENT [Suspect]
     Indication: RESPIRATORY FAILURE
     Route: 055
     Dates: start: 20080903
  3. FORMOTEROL FUMARATE [Concomitant]

REACTIONS (4)
  - DYSPNOEA [None]
  - MOVEMENT DISORDER [None]
  - SUFFOCATION FEELING [None]
  - TREMOR [None]
